FAERS Safety Report 15600866 (Version 2)
Quarter: 2018Q4

REPORT INFORMATION
  Report Type: Report from Study
  Country: None (occurrence: GR)
  Receive Date: 20181109
  Receipt Date: 20181210
  Transmission Date: 20190205
  Serious: Yes (Death)
  Sender: FDA-Public Use
  Company Number: GR-ABBVIE-18S-066-2549692-00

PATIENT
  Age: 77 Year
  Sex: Female
  Weight: 80 kg

DRUGS (5)
  1. DUODOPA [Suspect]
     Active Substance: CARBIDOPA\LEVODOPA
     Indication: PARKINSON^S DISEASE
     Route: 050
     Dates: start: 20151110
  2. SALOSPIR [Concomitant]
     Active Substance: ASPIRIN
     Indication: CEREBROVASCULAR ACCIDENT
     Route: 048
     Dates: start: 2014
  3. SEROPIN [Concomitant]
     Indication: PROPHYLAXIS
     Dosage: 12.5MG, 12.5MG, 37.5MG DAILY
     Route: 048
  4. ARTICLOX [Concomitant]
     Indication: VITAMIN B12 DEFICIENCY
     Dosage: 1MG/ 2ML
     Route: 050
  5. SELON [Concomitant]
     Indication: DEPRESSION
     Route: 048

REACTIONS (3)
  - Sepsis [Fatal]
  - Urinary tract infection [Fatal]
  - Cardiac arrest [Fatal]
